FAERS Safety Report 5600035-7 (Version None)
Quarter: 2008Q1

REPORT INFORMATION
  Report Type: 
  Country: None (occurrence: None)
  Receive Date: 20080123
  Receipt Date: 20080116
  Transmission Date: 20080703
  Serious: Yes (Hospitalization)
  Sender: FDA-Public Use
  Company Number: NO-ASTRAZENECA-2008SE00042

PATIENT
  Age: 28751 Day
  Sex: Female

DRUGS (11)
  1. SEROQUEL [Suspect]
     Indication: HALLUCINATION
     Route: 048
     Dates: start: 20070501, end: 20071215
  2. EXELON [Interacting]
     Indication: DEMENTIA
     Dates: start: 20071106
  3. CIPRALEX [Interacting]
     Indication: DEPRESSION
     Dates: start: 20070501, end: 20071214
  4. TRILAFON [Interacting]
     Indication: HALLUCINATION
     Dates: start: 20070501, end: 20071215
  5. EVISTA [Concomitant]
  6. NEXIUM [Concomitant]
  7. AKINETON [Concomitant]
     Dates: start: 20070501, end: 20071212
  8. DUROFERON [Concomitant]
  9. DUPHALAC [Concomitant]
  10. VI-SIBLIN [Concomitant]
  11. ZOPICLONE [Concomitant]

REACTIONS (5)
  - BALANCE DISORDER [None]
  - BRADYKINESIA [None]
  - COGNITIVE DISORDER [None]
  - DRUG INTERACTION [None]
  - EXTRAPYRAMIDAL DISORDER [None]
